FAERS Safety Report 24404942 (Version 3)
Quarter: 2024Q4

REPORT INFORMATION
  Report Type: Spontaneous
  Country: CA (occurrence: CA)
  Receive Date: 20241007
  Receipt Date: 20241204
  Transmission Date: 20250115
  Serious: No
  Sender: PFIZER
  Company Number: CA-PFIZER INC-202400266924

PATIENT
  Age: 68 Year
  Sex: Female

DRUGS (2)
  1. PREMARIN [Suspect]
     Active Substance: ESTROGENS, CONJUGATED
     Indication: Vulvovaginal pain
     Dosage: UNK
     Dates: start: 20240928
  2. PREMARIN [Suspect]
     Active Substance: ESTROGENS, CONJUGATED
     Indication: Vulvovaginal burning sensation

REACTIONS (8)
  - Muscle spasms [Unknown]
  - Off label use [Unknown]
  - Product prescribing issue [Unknown]
  - Product odour abnormal [Unknown]
  - Product design issue [Unknown]
  - Incorrect dose administered by device [Unknown]
  - Product label issue [Unknown]
  - Product cleaning inadequate [Unknown]
